FAERS Safety Report 17736762 (Version 1)
Quarter: 2020Q2

REPORT INFORMATION
  Report Type: Report from Study
  Country: None (occurrence: US)
  Receive Date: 20200502
  Receipt Date: 20200502
  Transmission Date: 20200714
  Serious: Yes (Other)
  Sender: FDA-Public Use
  Company Number: US-ABBVIE-20K-163-3385568-00

PATIENT
  Sex: Female

DRUGS (3)
  1. HUMIRA [Suspect]
     Active Substance: ADALIMUMAB
     Indication: HIDRADENITIS
     Route: 058
     Dates: start: 2019
  2. HUMIRA [Suspect]
     Active Substance: ADALIMUMAB
     Indication: CROHN^S DISEASE
  3. HUMIRA [Suspect]
     Active Substance: ADALIMUMAB
     Indication: COLITIS ULCERATIVE
     Route: 058

REACTIONS (10)
  - Pharyngitis [Recovered/Resolved]
  - Ulcer [Recovered/Resolved]
  - Oral infection [Recovered/Resolved]
  - Condition aggravated [Recovered/Resolved]
  - Systemic lupus erythematosus [Recovered/Resolved]
  - Fear of injection [Not Recovered/Not Resolved]
  - Panic attack [Recovered/Resolved]
  - Intentional product misuse [Not Recovered/Not Resolved]
  - Aphonia [Recovered/Resolved]
  - Off label use [Unknown]
